FAERS Safety Report 16799936 (Version 1)
Quarter: 2019Q4

REPORT INFORMATION
  Report Type: Spontaneous
  Country: US (occurrence: US)
  Receive Date: 20190912
  Receipt Date: 20190912
  Transmission Date: 20200122
  Serious: Yes (Hospitalization)
  Sender: FDA-Public Use
  Company Number: None

PATIENT
  Age: 71 Year
  Sex: Female

DRUGS (7)
  1. SPIRONOLACT [Concomitant]
     Active Substance: SPIRONOLACTONE
  2. NYSTOP//RANITIDINE [Concomitant]
  3. FERROUS SULF ELX/GLIPIZIDE/HYDRALAZINE [Concomitant]
  4. TORSEMIDE. [Concomitant]
     Active Substance: TORSEMIDE
  5. TADALAFIL. [Suspect]
     Active Substance: TADALAFIL
     Indication: ESSENTIAL HYPERTENSION
     Route: 048
     Dates: start: 20181024
  6. LEVOTHYROXIN/METFORMIN/NYSTATIN [Concomitant]
  7. ATORVASTATIN/DULOXETINE [Concomitant]

REACTIONS (1)
  - Uterine neoplasm [None]
